FAERS Safety Report 17129524 (Version 1)
Quarter: 2019Q4

REPORT INFORMATION
  Report Type: Spontaneous
  Country: JP (occurrence: JP)
  Receive Date: 20191209
  Receipt Date: 20191209
  Transmission Date: 20200122
  Serious: Yes (Other)
  Sender: FDA-Public Use
  Company Number: JP-PFIZER INC-2019524588

PATIENT
  Age: 87 Year
  Sex: Female

DRUGS (1)
  1. TRIAZOLAM. [Suspect]
     Active Substance: TRIAZOLAM
     Dosage: 0.125 MG, DAILY

REACTIONS (5)
  - Hallucination, visual [Unknown]
  - Abnormal behaviour [Unknown]
  - Insomnia [Unknown]
  - Cognitive disorder [Recovering/Resolving]
  - Anxiety [Unknown]
